FAERS Safety Report 10798318 (Version 6)
Quarter: 2015Q2

REPORT INFORMATION
  Report Type: Spontaneous
  Country: US (occurrence: US)
  Receive Date: 20150216
  Receipt Date: 20150615
  Transmission Date: 20150821
  Serious: Yes (Hospitalization, Disabling, Other)
  Sender: FDA-Public Use
  Company Number: US-009507513-1107USA03702

PATIENT
  Sex: Female
  Weight: 68.48 kg

DRUGS (4)
  1. BONIVA [Suspect]
     Active Substance: IBANDRONATE SODIUM
     Indication: BONE DENSITY DECREASED
     Dosage: 150 MG, UNK
     Route: 048
     Dates: start: 2008, end: 2010
  2. FOSAMAX [Suspect]
     Active Substance: ALENDRONATE SODIUM
     Indication: BONE DENSITY DECREASED
     Route: 048
  3. FOSAMAX [Suspect]
     Active Substance: ALENDRONATE SODIUM
     Indication: BONE DENSITY DECREASED
     Dosage: 70 MG, WEEKLY
     Route: 048
     Dates: start: 20010917, end: 2008
  4. RECLAST [Suspect]
     Active Substance: ZOLEDRONIC ACID
     Indication: BONE DENSITY DECREASED
     Dosage: UNK
     Dates: start: 2010

REACTIONS (47)
  - Fracture nonunion [Recovered/Resolved]
  - Fall [Unknown]
  - Intramedullary rod insertion [Unknown]
  - Periprosthetic fracture [Unknown]
  - Foot fracture [Unknown]
  - Osteoporosis [Unknown]
  - Deep vein thrombosis [Unknown]
  - Drug intolerance [Unknown]
  - Blood creatine phosphokinase increased [Unknown]
  - Antiphospholipid syndrome [Unknown]
  - Pneumonia [Unknown]
  - Pain [Not Recovered/Not Resolved]
  - Dyslipidaemia [Unknown]
  - Thrombosis [Unknown]
  - Vascular graft [Unknown]
  - Device failure [Unknown]
  - Postmenopause [Unknown]
  - Restless legs syndrome [Unknown]
  - Chronic obstructive pulmonary disease [Not Recovered/Not Resolved]
  - Anaemia of chronic disease [Unknown]
  - Arthralgia [Unknown]
  - Hip fracture [Unknown]
  - Dyspepsia [Unknown]
  - Surgery [Unknown]
  - Pneumonia [Unknown]
  - Osteoarthritis [Unknown]
  - Essential hypertension [Unknown]
  - Hypotension [Unknown]
  - Hysterectomy [Unknown]
  - Migraine [Unknown]
  - Rash [Unknown]
  - Gastrooesophageal reflux disease [Not Recovered/Not Resolved]
  - Drug hypersensitivity [Unknown]
  - Intramedullary rod insertion [Unknown]
  - Hip surgery [Recovered/Resolved]
  - Tonsillectomy [Unknown]
  - Disability [Not Recovered/Not Resolved]
  - Limb asymmetry [Unknown]
  - Hypoaesthesia [Unknown]
  - Anaemia [Unknown]
  - Dizziness [Unknown]
  - Femur fracture [Recovered/Resolved]
  - Joint arthroplasty [Unknown]
  - Pubis fracture [Unknown]
  - Asthma [Unknown]
  - Rib fracture [Unknown]
  - Back pain [Unknown]

NARRATIVE: CASE EVENT DATE: 19990601
